FAERS Safety Report 15801017 (Version 3)
Quarter: 2019Q3

REPORT INFORMATION
  Report Type: Report from Study
  Country: TR (occurrence: TR)
  Receive Date: 20190109
  Receipt Date: 20190930
  Transmission Date: 20191004
  Serious: Yes (Hospitalization)
  Sender: FDA-Public Use
  Company Number: TR-TEVA-2019-TR-994888

PATIENT
  Age: 33 Year
  Sex: Female

DRUGS (6)
  1. CARNITINE [Suspect]
     Active Substance: CARNITINE
     Dosage: ADMINISTERED DURING GESTATIONAL WEEK 0-5
     Route: 065
  2. ATORVASTATIN [Suspect]
     Active Substance: ATORVASTATIN
     Indication: HYPERTENSION
     Dosage: 80 MILLIGRAM DAILY; ADMINISTERED DURING GESTATIONAL WEEK 0-5
     Route: 048
  3. PARICALCITOL. [Suspect]
     Active Substance: PARICALCITOL
     Dosage: ADMINISTERED DURING GESTATIONAL WEEK 0-5
     Route: 065
  4. EPOETIN BETA [Suspect]
     Active Substance: ERYTHROPOIETIN
     Dosage: ADMINISTERED DURING GESTATIONAL WEEK 0-5
     Route: 065
  5. ACETYLSALICYLIC ACID [Suspect]
     Active Substance: ASPIRIN
     Dosage: 300 MILLIGRAM DAILY; ADMINISTERED DURING GESTATIONAL WEEK 0-5
     Route: 065
  6. CALCIUM ACETATE. [Suspect]
     Active Substance: CALCIUM ACETATE
     Dosage: 750 MILLIGRAM DAILY; ADMINISTERED DURING GESTATIONAL WEEK 0-5
     Route: 065

REACTIONS (3)
  - Abortion spontaneous [Unknown]
  - Contraindicated product administered [Unknown]
  - Maternal exposure during pregnancy [Unknown]
